FAERS Safety Report 5800109-1 (Version None)
Quarter: 2008Q3

REPORT INFORMATION
  Report Type: 
  Country: None (occurrence: None)
  Receive Date: 20080703
  Receipt Date: 20080625
  Transmission Date: 20090109
  Serious: Yes (Hospitalization)
  Sender: FDA-Public Use
  Company Number: JP-ABBOTT-08P-087-0459440-00

PATIENT
  Age: 80 Year
  Sex: Female

DRUGS (7)
  1. CLARITH TABLETS [Suspect]
     Indication: PRODUCTIVE COUGH
     Dates: start: 20080101, end: 20080101
  2. CLARITH TABLETS [Suspect]
     Indication: PNEUMONIA
     Dates: start: 20080123, end: 20080124
  3. CEFOZOPRAN HYDROCHLORIDE [Suspect]
     Indication: DRUG USE FOR UNKNOWN INDICATION
     Route: 042
     Dates: start: 20080123, end: 20080124
  4. LEVOFLOXACIN [Suspect]
     Indication: PYREXIA
     Dates: start: 20080101
  5. LEVOFLOXACIN [Suspect]
     Indication: PRODUCTIVE COUGH
  6. NICORANDIL [Concomitant]
     Indication: DRUG USE FOR UNKNOWN INDICATION
     Dates: end: 20080124
  7. LEVOFLOXACIN HYDRATE [Concomitant]
     Indication: PRODUCTIVE COUGH
     Route: 048
     Dates: start: 20080101, end: 20080101

REACTIONS (4)
  - DRUG ERUPTION [None]
  - DRUG INEFFECTIVE [None]
  - EOSINOPHIL COUNT INCREASED [None]
  - INTERSTITIAL LUNG DISEASE [None]
